FAERS Safety Report 9181561 (Version 1)
Quarter: 2013Q1

REPORT INFORMATION
  Report Type: Spontaneous
  Country: FR (occurrence: FR)
  Receive Date: 20130322
  Receipt Date: 20130322
  Transmission Date: 20140127
  Serious: Yes (Other)
  Sender: FDA-Public Use
  Company Number: FR-JNJFOC-20130306055

PATIENT
  Age: 60 Year
  Sex: Female

DRUGS (3)
  1. XEPLION [Suspect]
     Indication: SCHIZOPHRENIA
     Route: 030
  2. XEPLION [Suspect]
     Indication: SCHIZOPHRENIA
     Dosage: DAY 8
     Route: 030
  3. XEPLION [Suspect]
     Indication: SCHIZOPHRENIA
     Dosage: DAY 1
     Route: 030
     Dates: start: 201302

REACTIONS (2)
  - Delirium [Recovered/Resolved]
  - Automatism [Unknown]
